FAERS Safety Report 25415740 (Version 2)
Quarter: 2025Q2

REPORT INFORMATION
  Report Type: Spontaneous
  Country: CA (occurrence: CA)
  Receive Date: 20250610
  Receipt Date: 20250619
  Transmission Date: 20250717
  Serious: Yes (Hospitalization, Other)
  Sender: Haleon PLC
  Company Number: CA-002147023-NVSC2021CA012042

PATIENT
  Age: 75 Year
  Sex: Female
  Weight: 70 kg

DRUGS (200)
  1. DICLOFENAC [Suspect]
     Active Substance: DICLOFENAC
     Indication: Arthralgia
  2. DICLOFENAC [Suspect]
     Active Substance: DICLOFENAC
  3. VITAMIN D3 [Suspect]
     Active Substance: CHOLECALCIFEROL
     Indication: Product used for unknown indication
  4. VITAMIN D3 [Suspect]
     Active Substance: CHOLECALCIFEROL
  5. VITAMIN D3 [Suspect]
     Active Substance: CHOLECALCIFEROL
  6. VITAMIN D3 [Suspect]
     Active Substance: CHOLECALCIFEROL
  7. VITAMIN D3 [Suspect]
     Active Substance: CHOLECALCIFEROL
  8. CHOLECALCIFEROL [Suspect]
     Active Substance: CHOLECALCIFEROL
     Indication: Product used for unknown indication
  9. CHOLECALCIFEROL [Suspect]
     Active Substance: CHOLECALCIFEROL
  10. CHOLECALCIFEROL [Suspect]
     Active Substance: CHOLECALCIFEROL
  11. CHOLECALCIFEROL [Suspect]
     Active Substance: CHOLECALCIFEROL
  12. CHOLECALCIFEROL [Suspect]
     Active Substance: CHOLECALCIFEROL
  13. CHOLECALCIFEROL [Suspect]
     Active Substance: CHOLECALCIFEROL
  14. CHOLECALCIFEROL [Suspect]
     Active Substance: CHOLECALCIFEROL
  15. CHOLECALCIFEROL [Suspect]
     Active Substance: CHOLECALCIFEROL
  16. NICOTINAMIDE [Suspect]
     Active Substance: NIACINAMIDE
     Indication: Product used for unknown indication
  17. NICOTINAMIDE [Suspect]
     Active Substance: NIACINAMIDE
  18. PSEUDOEPHEDRINE HYDROCHLORIDE [Suspect]
     Active Substance: PSEUDOEPHEDRINE HYDROCHLORIDE
     Indication: Product used for unknown indication
  19. VITAMIN C [Suspect]
     Active Substance: ASCORBIC ACID
     Indication: Product used for unknown indication
  20. VITAMIN C [Suspect]
     Active Substance: ASCORBIC ACID
  21. IPRATROPIUM [Suspect]
     Active Substance: IPRATROPIUM
     Indication: Rhinitis
  22. IPRATROPIUM [Suspect]
     Active Substance: IPRATROPIUM
     Indication: Product used for unknown indication
  23. IPRATROPIUM [Suspect]
     Active Substance: IPRATROPIUM
  24. IPRATROPIUM [Suspect]
     Active Substance: IPRATROPIUM
  25. IPRATROPIUM [Suspect]
     Active Substance: IPRATROPIUM
  26. IPRATROPIUM [Suspect]
     Active Substance: IPRATROPIUM
  27. PYRIDOXINE [Suspect]
     Active Substance: PYRIDOXINE
     Indication: Product used for unknown indication
  28. PYRIDOXINE [Suspect]
     Active Substance: PYRIDOXINE
     Indication: Rhinitis
  29. PYRIDOXINE [Suspect]
     Active Substance: PYRIDOXINE
  30. PYRIDOXINE [Suspect]
     Active Substance: PYRIDOXINE
  31. PYRIDOXINE HYDROCHLORIDE [Suspect]
     Active Substance: PYRIDOXINE HYDROCHLORIDE
     Indication: Product used for unknown indication
  32. PYRIDOXINE HYDROCHLORIDE [Suspect]
     Active Substance: PYRIDOXINE HYDROCHLORIDE
     Indication: Rhinitis
  33. PYRIDOXINE HYDROCHLORIDE [Suspect]
     Active Substance: PYRIDOXINE HYDROCHLORIDE
  34. PYRIDOXINE HYDROCHLORIDE [Suspect]
     Active Substance: PYRIDOXINE HYDROCHLORIDE
  35. NAPROXEN [Suspect]
     Active Substance: NAPROXEN
     Indication: Arthralgia
  36. NAPROXEN [Suspect]
     Active Substance: NAPROXEN
  37. ESTRADIOL [Suspect]
     Active Substance: ESTRADIOL
     Indication: Menopausal symptoms
  38. ESTRADIOL [Suspect]
     Active Substance: ESTRADIOL
     Indication: Arthralgia
  39. ESTRADIOL [Suspect]
     Active Substance: ESTRADIOL
  40. ESTRADIOL [Suspect]
     Active Substance: ESTRADIOL
  41. ATORVASTATIN [Concomitant]
     Active Substance: ATORVASTATIN
     Indication: Dyslipidaemia
  42. ATORVASTATIN [Concomitant]
     Active Substance: ATORVASTATIN
     Indication: Product used for unknown indication
  43. ATORVASTATIN [Concomitant]
     Active Substance: ATORVASTATIN
     Indication: Dyslipidaemia
  44. VITAMINS [Suspect]
     Active Substance: VITAMINS
     Indication: Product used for unknown indication
  45. TUMS ULTRA [Suspect]
     Active Substance: CALCIUM CARBONATE
     Indication: Product used for unknown indication
  46. TUMS ULTRA [Suspect]
     Active Substance: CALCIUM CARBONATE
  47. TUMS ULTRA [Suspect]
     Active Substance: CALCIUM CARBONATE
  48. IPRATROPIUM BROMIDE [Suspect]
     Active Substance: IPRATROPIUM BROMIDE
     Indication: Rhinitis
  49. IPRATROPIUM BROMIDE [Suspect]
     Active Substance: IPRATROPIUM BROMIDE
     Indication: Product used for unknown indication
  50. IPRATROPIUM BROMIDE [Suspect]
     Active Substance: IPRATROPIUM BROMIDE
  51. IPRATROPIUM BROMIDE [Suspect]
     Active Substance: IPRATROPIUM BROMIDE
  52. IPRATROPIUM BROMIDE [Suspect]
     Active Substance: IPRATROPIUM BROMIDE
  53. IPRATROPIUM BROMIDE [Suspect]
     Active Substance: IPRATROPIUM BROMIDE
  54. IPRATROPIUM BROMIDE [Suspect]
     Active Substance: IPRATROPIUM BROMIDE
  55. IPRATROPIUM BROMIDE [Suspect]
     Active Substance: IPRATROPIUM BROMIDE
  56. AZOPT [Suspect]
     Active Substance: BRINZOLAMIDE
     Indication: Glaucoma
  57. AZOPT [Suspect]
     Active Substance: BRINZOLAMIDE
  58. AZOPT [Suspect]
     Active Substance: BRINZOLAMIDE
  59. AZOPT [Suspect]
     Active Substance: BRINZOLAMIDE
  60. AZOPT [Suspect]
     Active Substance: BRINZOLAMIDE
  61. VITAMINS [Concomitant]
     Active Substance: VITAMINS
     Indication: Product used for unknown indication
  62. ADVIL [Suspect]
     Active Substance: IBUPROFEN
     Indication: Arthralgia
  63. PREGABALIN [Suspect]
     Active Substance: PREGABALIN
     Indication: Arthralgia
  64. PREGABALIN [Suspect]
     Active Substance: PREGABALIN
  65. PREGABALIN [Suspect]
     Active Substance: PREGABALIN
  66. PREGABALIN [Suspect]
     Active Substance: PREGABALIN
  67. PREGABALIN [Suspect]
     Active Substance: PREGABALIN
  68. AZARGA [Suspect]
     Active Substance: BRINZOLAMIDE\TIMOLOL MALEATE
     Indication: Glaucoma
  69. AZARGA [Suspect]
     Active Substance: BRINZOLAMIDE\TIMOLOL MALEATE
  70. AZARGA [Suspect]
     Active Substance: BRINZOLAMIDE\TIMOLOL MALEATE
  71. AZARGA [Suspect]
     Active Substance: BRINZOLAMIDE\TIMOLOL MALEATE
  72. AZARGA [Suspect]
     Active Substance: BRINZOLAMIDE\TIMOLOL MALEATE
  73. AZARGA [Suspect]
     Active Substance: BRINZOLAMIDE\TIMOLOL MALEATE
     Route: 031
  74. AZARGA [Suspect]
     Active Substance: BRINZOLAMIDE\TIMOLOL MALEATE
  75. AZARGA [Suspect]
     Active Substance: BRINZOLAMIDE\TIMOLOL MALEATE
  76. ACETAMINOPHEN\PSEUDOEPHEDRINE HYDROCHLORIDE [Concomitant]
     Active Substance: ACETAMINOPHEN\PSEUDOEPHEDRINE HYDROCHLORIDE
     Indication: Product used for unknown indication
  77. ACETAMINOPHEN\PSEUDOEPHEDRINE HYDROCHLORIDE [Concomitant]
     Active Substance: ACETAMINOPHEN\PSEUDOEPHEDRINE HYDROCHLORIDE
  78. ACETAMINOPHEN\PSEUDOEPHEDRINE HYDROCHLORIDE [Concomitant]
     Active Substance: ACETAMINOPHEN\PSEUDOEPHEDRINE HYDROCHLORIDE
  79. ACETAMINOPHEN\PSEUDOEPHEDRINE HYDROCHLORIDE [Concomitant]
     Active Substance: ACETAMINOPHEN\PSEUDOEPHEDRINE HYDROCHLORIDE
  80. ACETAMINOPHEN\PSEUDOEPHEDRINE HYDROCHLORIDE [Concomitant]
     Active Substance: ACETAMINOPHEN\PSEUDOEPHEDRINE HYDROCHLORIDE
  81. ACETAMINOPHEN [Suspect]
     Active Substance: ACETAMINOPHEN
     Indication: Product used for unknown indication
  82. ACETAMINOPHEN [Suspect]
     Active Substance: ACETAMINOPHEN
  83. ACETAMINOPHEN [Suspect]
     Active Substance: ACETAMINOPHEN
  84. ATORVASTATIN CALCIUM [Suspect]
     Active Substance: ATORVASTATIN CALCIUM
     Indication: Dyslipidaemia
  85. ATORVASTATIN CALCIUM [Suspect]
     Active Substance: ATORVASTATIN CALCIUM
  86. ATORVASTATIN CALCIUM [Suspect]
     Active Substance: ATORVASTATIN CALCIUM
  87. ATORVASTATIN CALCIUM [Suspect]
     Active Substance: ATORVASTATIN CALCIUM
  88. TELMISARTAN [Suspect]
     Active Substance: TELMISARTAN
     Indication: Hypertension
  89. TELMISARTAN [Suspect]
     Active Substance: TELMISARTAN
     Indication: Glaucoma
  90. TELMISARTAN [Suspect]
     Active Substance: TELMISARTAN
     Indication: Product used for unknown indication
  91. TELMISARTAN [Suspect]
     Active Substance: TELMISARTAN
  92. TELMISARTAN [Suspect]
     Active Substance: TELMISARTAN
  93. TELMISARTAN [Suspect]
     Active Substance: TELMISARTAN
  94. TELMISARTAN [Suspect]
     Active Substance: TELMISARTAN
  95. TELMISARTAN [Suspect]
     Active Substance: TELMISARTAN
  96. TELMISARTAN [Suspect]
     Active Substance: TELMISARTAN
  97. TELMISARTAN [Suspect]
     Active Substance: TELMISARTAN
  98. TELMISARTAN [Suspect]
     Active Substance: TELMISARTAN
  99. TELMISARTAN [Suspect]
     Active Substance: TELMISARTAN
  100. DICLOFENAC SODIUM [Suspect]
     Active Substance: DICLOFENAC SODIUM
     Indication: Arthralgia
  101. DICLOFENAC SODIUM [Suspect]
     Active Substance: DICLOFENAC SODIUM
  102. DICLOFENAC SODIUM [Suspect]
     Active Substance: DICLOFENAC SODIUM
  103. DICLOFENAC SODIUM [Suspect]
     Active Substance: DICLOFENAC SODIUM
  104. LATANOPROST [Suspect]
     Active Substance: LATANOPROST
     Indication: Glaucoma
  105. LATANOPROST [Suspect]
     Active Substance: LATANOPROST
  106. LATANOPROST [Suspect]
     Active Substance: LATANOPROST
  107. LATANOPROST [Suspect]
     Active Substance: LATANOPROST
  108. LATANOPROST [Suspect]
     Active Substance: LATANOPROST
  109. LATANOPROST [Suspect]
     Active Substance: LATANOPROST
  110. LATANOPROST [Suspect]
     Active Substance: LATANOPROST
  111. AMOXICILLIN TRIHYDRATE [Suspect]
     Active Substance: AMOXICILLIN
     Indication: Sinusitis
  112. AMOXICILLIN TRIHYDRATE [Suspect]
     Active Substance: AMOXICILLIN
  113. BRINZOLAMIDE\TIMOLOL MALEATE [Suspect]
     Active Substance: BRINZOLAMIDE\TIMOLOL MALEATE
     Indication: Glaucoma
  114. BRINZOLAMIDE\TIMOLOL MALEATE [Suspect]
     Active Substance: BRINZOLAMIDE\TIMOLOL MALEATE
  115. CLONAZEPAM [Suspect]
     Active Substance: CLONAZEPAM
     Indication: Product used for unknown indication
  116. CLONAZEPAM [Suspect]
     Active Substance: CLONAZEPAM
  117. ESTRADIOL [Suspect]
     Active Substance: ESTRADIOL
     Indication: Product used for unknown indication
  118. ESTRADIOL [Suspect]
     Active Substance: ESTRADIOL
  119. VITAMIN B6 [Concomitant]
     Active Substance: PYRIDOXINE HYDROCHLORIDE
     Indication: Product used for unknown indication
  120. VITAMIN B6 [Concomitant]
     Active Substance: PYRIDOXINE HYDROCHLORIDE
  121. VITAMIN B6 [Concomitant]
     Active Substance: PYRIDOXINE HYDROCHLORIDE
  122. ZOPICLONE [Suspect]
     Active Substance: ZOPICLONE
     Indication: Insomnia
  123. ZOPICLONE [Suspect]
     Active Substance: ZOPICLONE
     Indication: Sinusitis
  124. ZOPICLONE [Suspect]
     Active Substance: ZOPICLONE
     Indication: Dyslipidaemia
  125. ZOPICLONE [Suspect]
     Active Substance: ZOPICLONE
     Indication: Arthralgia
  126. ZOPICLONE [Suspect]
     Active Substance: ZOPICLONE
  127. ZOPICLONE [Suspect]
     Active Substance: ZOPICLONE
  128. ZOPICLONE [Suspect]
     Active Substance: ZOPICLONE
  129. ZOPICLONE [Suspect]
     Active Substance: ZOPICLONE
  130. ZOPICLONE [Suspect]
     Active Substance: ZOPICLONE
  131. ZOPICLONE [Suspect]
     Active Substance: ZOPICLONE
  132. ZOPICLONE [Suspect]
     Active Substance: ZOPICLONE
  133. ZOPICLONE [Suspect]
     Active Substance: ZOPICLONE
  134. ZOPICLONE [Suspect]
     Active Substance: ZOPICLONE
  135. ZOPICLONE [Suspect]
     Active Substance: ZOPICLONE
  136. ZOPICLONE [Suspect]
     Active Substance: ZOPICLONE
  137. ZOPICLONE [Suspect]
     Active Substance: ZOPICLONE
  138. ZOPICLONE [Suspect]
     Active Substance: ZOPICLONE
  139. ZOPICLONE [Suspect]
     Active Substance: ZOPICLONE
  140. ZOPICLONE [Suspect]
     Active Substance: ZOPICLONE
  141. ZOPICLONE [Suspect]
     Active Substance: ZOPICLONE
  142. ZOPICLONE [Suspect]
     Active Substance: ZOPICLONE
  143. ZOPICLONE [Suspect]
     Active Substance: ZOPICLONE
  144. BRINZOLAMIDE\TIMOLOL MALEATE [Suspect]
     Active Substance: BRINZOLAMIDE\TIMOLOL MALEATE
     Indication: Glaucoma
  145. BRINZOLAMIDE\TIMOLOL MALEATE [Suspect]
     Active Substance: BRINZOLAMIDE\TIMOLOL MALEATE
  146. BRINZOLAMIDE\TIMOLOL MALEATE [Suspect]
     Active Substance: BRINZOLAMIDE\TIMOLOL MALEATE
  147. BRINZOLAMIDE\TIMOLOL MALEATE [Suspect]
     Active Substance: BRINZOLAMIDE\TIMOLOL MALEATE
  148. BRINZOLAMIDE\TIMOLOL MALEATE [Suspect]
     Active Substance: BRINZOLAMIDE\TIMOLOL MALEATE
  149. BRINZOLAMIDE\TIMOLOL MALEATE [Suspect]
     Active Substance: BRINZOLAMIDE\TIMOLOL MALEATE
  150. BRINZOLAMIDE\TIMOLOL MALEATE [Suspect]
     Active Substance: BRINZOLAMIDE\TIMOLOL MALEATE
  151. BRINZOLAMIDE\TIMOLOL MALEATE [Suspect]
     Active Substance: BRINZOLAMIDE\TIMOLOL MALEATE
  152. BRINZOLAMIDE\TIMOLOL MALEATE [Suspect]
     Active Substance: BRINZOLAMIDE\TIMOLOL MALEATE
  153. BRINZOLAMIDE\TIMOLOL MALEATE [Suspect]
     Active Substance: BRINZOLAMIDE\TIMOLOL MALEATE
  154. BRINZOLAMIDE\TIMOLOL MALEATE [Suspect]
     Active Substance: BRINZOLAMIDE\TIMOLOL MALEATE
  155. BRINZOLAMIDE\TIMOLOL MALEATE [Suspect]
     Active Substance: BRINZOLAMIDE\TIMOLOL MALEATE
  156. BRINZOLAMIDE\TIMOLOL MALEATE [Suspect]
     Active Substance: BRINZOLAMIDE\TIMOLOL MALEATE
  157. BRINZOLAMIDE\TIMOLOL MALEATE [Suspect]
     Active Substance: BRINZOLAMIDE\TIMOLOL MALEATE
  158. BRINZOLAMIDE\TIMOLOL MALEATE [Suspect]
     Active Substance: BRINZOLAMIDE\TIMOLOL MALEATE
  159. ATORVASTATIN CALCIUM [Concomitant]
     Active Substance: ATORVASTATIN CALCIUM
     Indication: Product used for unknown indication
  160. ATORVASTATIN CALCIUM [Concomitant]
     Active Substance: ATORVASTATIN CALCIUM
     Indication: Dyslipidaemia
  161. ATORVASTATIN CALCIUM [Concomitant]
     Active Substance: ATORVASTATIN CALCIUM
  162. ATORVASTATIN CALCIUM [Concomitant]
     Active Substance: ATORVASTATIN CALCIUM
  163. ACETAMINOPHEN [Concomitant]
     Active Substance: ACETAMINOPHEN
     Indication: Product used for unknown indication
  164. ACETAMINOPHEN [Concomitant]
     Active Substance: ACETAMINOPHEN
  165. GABAPENTIN [Suspect]
     Active Substance: GABAPENTIN
     Indication: Arthralgia
  166. GABAPENTIN [Suspect]
     Active Substance: GABAPENTIN
  167. CHOLECALCIFEROL [Suspect]
     Active Substance: CHOLECALCIFEROL
     Indication: Product used for unknown indication
  168. CHOLECALCIFEROL [Suspect]
     Active Substance: CHOLECALCIFEROL
  169. CHOLECALCIFEROL [Suspect]
     Active Substance: CHOLECALCIFEROL
  170. CHOLECALCIFEROL [Suspect]
     Active Substance: CHOLECALCIFEROL
  171. CHOLECALCIFEROL [Concomitant]
     Active Substance: CHOLECALCIFEROL
     Indication: Product used for unknown indication
  172. CHOLECALCIFEROL [Concomitant]
     Active Substance: CHOLECALCIFEROL
  173. CLONAZEPAM [Suspect]
     Active Substance: CLONAZEPAM
     Indication: Product used for unknown indication
  174. CLONAZEPAM [Suspect]
     Active Substance: CLONAZEPAM
  175. BRINZOLAMIDE [Suspect]
     Active Substance: BRINZOLAMIDE
     Indication: Glaucoma
  176. BRINZOLAMIDE [Suspect]
     Active Substance: BRINZOLAMIDE
  177. BRINZOLAMIDE [Suspect]
     Active Substance: BRINZOLAMIDE
  178. BRINZOLAMIDE [Suspect]
     Active Substance: BRINZOLAMIDE
  179. AMOXICILLIN [Suspect]
     Active Substance: AMOXICILLIN
     Indication: Sinusitis
  180. AMOXICILLIN [Suspect]
     Active Substance: AMOXICILLIN
  181. IPRATROPIUM [Concomitant]
     Active Substance: IPRATROPIUM
     Indication: Product used for unknown indication
  182. IPRATROPIUM [Concomitant]
     Active Substance: IPRATROPIUM
  183. DEXPANTHENOL [Suspect]
     Active Substance: DEXPANTHENOL
     Indication: Product used for unknown indication
  184. ERGOCALCIFEROL [Suspect]
     Active Substance: ERGOCALCIFEROL
     Indication: Product used for unknown indication
  185. ERGOCALCIFEROL [Suspect]
     Active Substance: ERGOCALCIFEROL
  186. VITAMIN A [Suspect]
     Active Substance: VITAMIN A
     Indication: Product used for unknown indication
  187. VITAMIN A [Suspect]
     Active Substance: VITAMIN A
  188. RIBOFLAVIN [Suspect]
     Active Substance: RIBOFLAVIN
     Indication: Product used for unknown indication
  189. RIBOFLAVIN [Suspect]
     Active Substance: RIBOFLAVIN
  190. ATORVASTATIN [Suspect]
     Active Substance: ATORVASTATIN
     Indication: Dyslipidaemia
  191. ATORVASTATIN [Suspect]
     Active Substance: ATORVASTATIN
  192. THIAMINE HYDROCHLORIDE [Suspect]
     Active Substance: THIAMINE HYDROCHLORIDE
     Indication: Product used for unknown indication
  193. THIAMINE HYDROCHLORIDE [Suspect]
     Active Substance: THIAMINE HYDROCHLORIDE
  194. VITAMINS [Suspect]
     Active Substance: VITAMINS
     Indication: Product used for unknown indication
  195. VITAMINS [Suspect]
     Active Substance: VITAMINS
  196. CHLORPHENIRAMINE MALEATE\PSEUDOEPHEDRINE HYDROCHLORIDE [Suspect]
     Active Substance: CHLORPHENIRAMINE MALEATE\PSEUDOEPHEDRINE HYDROCHLORIDE
     Indication: Product used for unknown indication
  197. VITAMIN B6 [Suspect]
     Active Substance: PYRIDOXINE HYDROCHLORIDE
     Indication: Product used for unknown indication
  198. VITAMIN B6 [Suspect]
     Active Substance: PYRIDOXINE HYDROCHLORIDE
  199. CALCIUM CARBONATE\DIMETHICONE [Suspect]
     Active Substance: CALCIUM CARBONATE\DIMETHICONE
     Indication: Product used for unknown indication
  200. VITAMINS NOS [Suspect]
     Active Substance: VITAMINS
     Indication: Product used for unknown indication

REACTIONS (7)
  - Toxic epidermal necrolysis [Unknown]
  - Nikolsky^s sign test [Recovered/Resolved]
  - Epidermal necrosis [Unknown]
  - Off label use [Recovered/Resolved]
  - Haemoglobin decreased [Unknown]
  - Rash erythematous [Recovered/Resolved]
  - Rash papular [Unknown]
